FAERS Safety Report 4398998-3 (Version None)
Quarter: 2004Q3

REPORT INFORMATION
  Report Type: 
  Country: None (occurrence: None)
  Receive Date: 20040715
  Receipt Date: 20030929
  Transmission Date: 20050211
  Serious: Yes (Disabling, Other)
  Sender: FDA-Public Use
  Company Number: US-MERCK-0310USA00122

PATIENT
  Age: 40 Year
  Sex: Female
  Weight: 61 kg

DRUGS (6)
  1. [THERAPY UNSPECIFIED] [Concomitant]
     Indication: PAIN
     Route: 065
     Dates: start: 19951201, end: 20001101
  2. REMICADE [Concomitant]
     Route: 065
  3. INJECTABLE GOLD (UNSPECIFIED) [Concomitant]
     Route: 065
  4. METHOTREXATE [Concomitant]
     Indication: ARTHRITIS
     Route: 065
     Dates: start: 19951201
  5. VIOXX [Suspect]
     Indication: PAIN
     Route: 048
     Dates: start: 20001101
  6. VIOXX [Suspect]
     Route: 048
     Dates: start: 20001101

REACTIONS (13)
  - ALOPECIA [None]
  - ARTHRITIS [None]
  - ARTHROPATHY [None]
  - CARDIAC DISORDER [None]
  - CARDIAC FLUTTER [None]
  - CONDITION AGGRAVATED [None]
  - EMOTIONAL DISTRESS [None]
  - FEAR [None]
  - GASTRIC DISORDER [None]
  - HEADACHE [None]
  - NAUSEA [None]
  - SWELLING [None]
  - UTERINE DISORDER [None]
